FAERS Safety Report 9834453 (Version 1)
Quarter: 2014Q1

REPORT INFORMATION
  Report Type: Spontaneous
  Country: US (occurrence: US)
  Receive Date: 20140122
  Receipt Date: 20140122
  Transmission Date: 20141002
  Serious: Yes (Hospitalization)
  Sender: FDA-Public Use
  Company Number: US-B.I. PHARMACEUTICALS,INC./RIDGEFIELD-2014-BI-02467BP

PATIENT
  Sex: Female
  Weight: 43 kg

DRUGS (5)
  1. SPIRIVA [Suspect]
     Indication: CHRONIC OBSTRUCTIVE PULMONARY DISEASE
     Dosage: 18 MCG
     Route: 055
     Dates: start: 2008
  2. LISINOPRIL [Concomitant]
     Indication: HYPERTENSION
     Dosage: 20 MG
     Route: 048
  3. PREDNISONE [Concomitant]
     Indication: BRONCHITIS CHRONIC
     Dosage: 5 MG
     Route: 048
  4. PREDNISONE [Concomitant]
     Dosage: 10 MG
     Route: 048
  5. ADVAIR [Concomitant]
     Indication: BRONCHITIS CHRONIC
     Dosage: DOSE PER APPLICATION : 500/50; DAILY DOSE: 1000/100
     Route: 055

REACTIONS (1)
  - Bronchitis chronic [Recovered/Resolved]
